FAERS Safety Report 14996304 (Version 1)
Quarter: 2018Q2

REPORT INFORMATION
  Report Type: Spontaneous
  Country: US (occurrence: US)
  Receive Date: 20180611
  Receipt Date: 20180611
  Transmission Date: 20180711
  Serious: Yes (Other)
  Sender: FDA-Public Use
  Company Number: US-JNJFOC-20180609915

PATIENT
  Age: 66 Year
  Sex: Female

DRUGS (12)
  1. ALPHA LIPOIC ACID [Concomitant]
     Active Substance: .ALPHA.-LIPOIC ACID
  2. CYMBALTA [Concomitant]
     Active Substance: DULOXETINE HYDROCHLORIDE
  3. MILK OF MAGNESIA [Concomitant]
     Active Substance: MAGNESIUM HYDROXIDE
  4. IMBRUVICA [Concomitant]
     Active Substance: IBRUTINIB
     Indication: WALDENSTROM^S MACROGLOBULINAEMIA
     Route: 048
     Dates: start: 20180507
  5. EPIPEN [Concomitant]
     Active Substance: EPINEPHRINE
  6. COLLAGEN [Concomitant]
     Active Substance: COLLAGEN
  7. BIOTIN [Concomitant]
     Active Substance: BIOTIN
  8. KLOR-CON [Concomitant]
     Active Substance: POTASSIUM CHLORIDE
  9. LASIX [Concomitant]
     Active Substance: FUROSEMIDE
  10. IMBRUVICA [Suspect]
     Active Substance: IBRUTINIB
     Indication: WALDENSTROM^S MACROGLOBULINAEMIA
     Route: 048
     Dates: start: 20180209
  11. TIZANIDINE. [Concomitant]
     Active Substance: TIZANIDINE
  12. GLUTAMINE [Concomitant]
     Active Substance: GLUTAMINE

REACTIONS (5)
  - Dyspnoea [Unknown]
  - Abdominal pain upper [Unknown]
  - Back pain [Unknown]
  - Visual impairment [Unknown]
  - Temporal arteritis [Unknown]

NARRATIVE: CASE EVENT DATE: 20180506
